FAERS Safety Report 26184071 (Version 2)
Quarter: 2025Q4

REPORT INFORMATION
  Report Type: Spontaneous
  Country: JP (occurrence: JP)
  Receive Date: 20251222
  Receipt Date: 20251226
  Transmission Date: 20260118
  Serious: No
  Sender: AMGEN
  Company Number: JP-KYOWAKIRIN-2025KK023843

PATIENT

DRUGS (1)
  1. DARBEPOETIN ALFA [Suspect]
     Active Substance: DARBEPOETIN ALFA
     Indication: Nephrogenic anaemia
     Dosage: UNK UG
     Route: 042

REACTIONS (1)
  - No adverse event [Unknown]
